FAERS Safety Report 9765632 (Version 1)
Quarter: 2013Q4

REPORT INFORMATION
  Report Type: Spontaneous
  Country: US (occurrence: US)
  Receive Date: 20131217
  Receipt Date: 20131217
  Transmission Date: 20140711
  Serious: No
  Sender: FDA-Public Use
  Company Number: US-GLAXOSMITHKLINE-A1009177A

PATIENT
  Age: 78 Year
  Sex: Male

DRUGS (8)
  1. VOTRIENT [Suspect]
     Indication: RENAL CANCER
     Dosage: 800MG PER DAY
     Route: 048
     Dates: start: 20121024, end: 201301
  2. TUMS [Concomitant]
  3. VITAMIN D [Concomitant]
  4. CALCIUM [Concomitant]
  5. ADVAIR [Concomitant]
  6. SPIRIVA [Concomitant]
  7. IPRATROPIUM [Concomitant]
     Route: 045
  8. ZOMETA [Concomitant]

REACTIONS (3)
  - Liver function test abnormal [Recovered/Resolved]
  - Fatigue [Unknown]
  - Decreased appetite [Unknown]
